FAERS Safety Report 19570076 (Version 1)
Quarter: 2021Q3

REPORT INFORMATION
  Report Type: Spontaneous
  Country: CN (occurrence: CN)
  Receive Date: 20210716
  Receipt Date: 20210716
  Transmission Date: 20211014
  Serious: Yes (Other)
  Sender: FDA-Public Use
  Company Number: CN-PFIZER INC-2021831690

PATIENT
  Age: 19 Month
  Sex: Female
  Weight: 10.5 kg

DRUGS (1)
  1. AZITHROMYCIN ANHYDROUS. [Suspect]
     Active Substance: AZITHROMYCIN ANHYDROUS
     Indication: BRONCHITIS
     Dosage: 1 DF, 1X/DAY
     Route: 048
     Dates: start: 20210625

REACTIONS (3)
  - Rash maculo-papular [Recovering/Resolving]
  - Drug hypersensitivity [Recovering/Resolving]
  - Eyelid oedema [Recovering/Resolving]

NARRATIVE: CASE EVENT DATE: 20210625
